FAERS Safety Report 4861102-9 (Version None)
Quarter: 2005Q4

REPORT INFORMATION
  Report Type: 
  Country: None (occurrence: None)
  Receive Date: 20051220
  Receipt Date: 20051215
  Transmission Date: 20060501
  Serious: Yes (Other)
  Sender: FDA-Public Use
  Company Number: JP-JPN-A20053100

PATIENT
  Age: 15 Year
  Sex: Female
  Weight: 51 kg

DRUGS (2)
  1. ZOVIRAX [Suspect]
     Indication: VARICELLA
     Dosage: 1G FOUR TIMES PER DAY
     Route: 048
     Dates: start: 20051123, end: 20051123
  2. PHENOL + ZINC OXIDE LINIMENT [Concomitant]
     Route: 061

REACTIONS (3)
  - CHROMATURIA [None]
  - HAEMOLYSIS [None]
  - HEADACHE [None]
